FAERS Safety Report 15696189 (Version 2)
Quarter: 2019Q3

REPORT INFORMATION
  Report Type: Report from Study
  Country: US (occurrence: US)
  Receive Date: 20181206
  Receipt Date: 20190906
  Transmission Date: 20191004
  Serious: Yes (Hospitalization)
  Sender: FDA-Public Use
  Company Number: US-ACTELION-A-US2018-182934

PATIENT
  Age: 57 Year
  Sex: Female

DRUGS (10)
  1. VITAMIN C [Concomitant]
     Active Substance: ASCORBIC ACID
  2. FERROUS SULFATE. [Concomitant]
     Active Substance: FERROUS SULFATE
  3. LEVOFLOXACIN. [Concomitant]
     Active Substance: LEVOFLOXACIN
  4. METHYLPRED [Concomitant]
     Active Substance: METHYLPREDNISOLONE
  5. MAGNESIUM [Concomitant]
     Active Substance: MAGNESIUM
  6. HYDROCHLOROTHIAZIDE. [Concomitant]
     Active Substance: HYDROCHLOROTHIAZIDE
  7. DIOVAN [Concomitant]
     Active Substance: VALSARTAN
  8. ADEMPAS [Concomitant]
     Active Substance: RIOCIGUAT
  9. MULTIVITAMIN [Concomitant]
     Active Substance: VITAMINS
  10. OPSUMIT [Suspect]
     Active Substance: MACITENTAN
     Indication: PULMONARY ARTERIAL HYPERTENSION
     Dosage: 10 MG, QD
     Route: 048
     Dates: start: 20161223

REACTIONS (2)
  - Lung transplant [Recovered/Resolved]
  - Pneumonia [Unknown]

NARRATIVE: CASE EVENT DATE: 20181115
